FAERS Safety Report 6946766-8 (Version None)
Quarter: 2010Q3

REPORT INFORMATION
  Report Type: 
  Country: None (occurrence: None)
  Receive Date: 20100825
  Receipt Date: 20100809
  Transmission Date: 20110219
  Serious: Yes (Hospitalization)
  Sender: FDA-Public Use
  Company Number: DSA_43742_2010

PATIENT
  Age: 82 Year
  Sex: Male

DRUGS (5)
  1. ENALAPRIL MALEATE [Suspect]
     Indication: ESSENTIAL HYPERTENSION
     Dosage: 10 MG QD ORAL
     Route: 048
     Dates: end: 20100211
  2. ATENOLOL [Suspect]
     Indication: ESSENTIAL HYPERTENSION
     Dosage: 100 MG QD ORAL
     Route: 048
     Dates: end: 20100211
  3. ALLOPURIOL [Concomitant]
  4. FURIX [Concomitant]
  5. NITROMEX [Concomitant]

REACTIONS (4)
  - BLOOD CREATININE INCREASED [None]
  - FALL [None]
  - HYPOTENSION [None]
  - SCREAMING [None]
